FAERS Safety Report 10423835 (Version 1)
Quarter: 2014Q3

REPORT INFORMATION
  Report Type: Report from Study
  Country: US (occurrence: US)
  Receive Date: 20140902
  Receipt Date: 20140902
  Transmission Date: 20150326
  Serious: Yes (Hospitalization)
  Sender: FDA-Public Use
  Company Number: US-BAYER-2014-126760

PATIENT
  Age: 34 Year
  Sex: Female

DRUGS (2)
  1. DROSPIRENONE + ETHINYLESTRADIOL 30?G [Suspect]
     Active Substance: DROSPIRENONE\ETHINYL ESTRADIOL
     Indication: ORAL CONTRACEPTION
     Route: 048
  2. AZITHROMYCIN [Suspect]
     Active Substance: AZITHROMYCIN ANHYDROUS

REACTIONS (1)
  - Drug-induced liver injury [Recovered/Resolved]
